FAERS Safety Report 23020272 (Version 1)
Quarter: 2023Q4

REPORT INFORMATION
  Report Type: Spontaneous
  Country: US (occurrence: None)
  Receive Date: 20231002
  Receipt Date: 20231002
  Transmission Date: 20240110
  Serious: Yes (Death)
  Sender: FDA-Public Use
  Company Number: None

PATIENT
  Age: 70 Year
  Sex: Male
  Weight: 112 kg

DRUGS (9)
  1. TECARTUS [Suspect]
     Active Substance: BREXUCABTAGENE AUTOLEUCEL
     Indication: Mantle cell lymphoma
     Dosage: OTHER FREQUENCY : ONCE;?
     Route: 042
     Dates: start: 20230524
  2. ACTEMRA [Concomitant]
     Active Substance: TOCILIZUMAB
     Dates: start: 20230530, end: 20230530
  3. dexAMETHasone (Decadron) injection [Concomitant]
     Dates: start: 20230530, end: 20230613
  4. anakinra (Kineret) [Concomitant]
     Dates: start: 20230531, end: 20230613
  5. acyclovir (Zovirax) [Concomitant]
     Dates: start: 20230524, end: 20230613
  6. ruxolitinib (Jakafi) [Concomitant]
     Dates: start: 20230611, end: 20230613
  7. VANCOMYCIN [Concomitant]
     Active Substance: VANCOMYCIN
     Dates: start: 20230611, end: 20230613
  8. MEROPENEM [Concomitant]
     Active Substance: MEROPENEM
     Dates: start: 20230611, end: 20230613
  9. ZOSYN [Concomitant]
     Active Substance: PIPERACILLIN SODIUM\TAZOBACTAM SODIUM
     Dates: start: 20230611, end: 20230612

REACTIONS (14)
  - Cytokine release syndrome [None]
  - Atrial fibrillation [None]
  - Pelvic venous thrombosis [None]
  - Hepatic enzyme increased [None]
  - Hyperuricaemia [None]
  - Immune effector cell-associated neurotoxicity syndrome [None]
  - Abdominal pain lower [None]
  - Blood lactic acid increased [None]
  - Hypotension [None]
  - Hypothermia [None]
  - Tachypnoea [None]
  - Acute kidney injury [None]
  - Mental status changes [None]
  - Pulseless electrical activity [None]

NARRATIVE: CASE EVENT DATE: 20230101
